FAERS Safety Report 6018072-X (Version None)
Quarter: 2008Q4

REPORT INFORMATION
  Report Type: 
  Country: None (occurrence: None)
  Receive Date: 20081223
  Receipt Date: 20081211
  Transmission Date: 20090506
  Serious: Yes (Other)
  Sender: FDA-Public Use
  Company Number: BR-PFIZER INC-2008074143

PATIENT

DRUGS (1)
  1. DOSTINEX [Suspect]
     Route: 048

REACTIONS (1)
  - HYPOTHALAMO-PITUITARY DISORDER [None]
